FAERS Safety Report 4698597-X (Version None)
Quarter: 2005Q2

REPORT INFORMATION
  Report Type: 
  Country: None (occurrence: None)
  Receive Date: 20050623
  Receipt Date: 20050613
  Transmission Date: 20051028
  Serious: Yes (Hospitalization, Congenital Anomaly)
  Sender: FDA-Public Use
  Company Number: FR-ABBOTT-05P-056-0303082-00

PATIENT
  Sex: Male
  Weight: 3.48 kg

DRUGS (2)
  1. DEPAKENE [Suspect]
     Indication: DRUG EXPOSURE DURING PREGNANCY
  2. LEVOTHYROXINE SODIUM [Concomitant]
     Indication: DRUG EXPOSURE DURING PREGNANCY

REACTIONS (17)
  - ATRIAL SEPTAL DEFECT [None]
  - BLOOD ALKALINE PHOSPHATASE INCREASED [None]
  - CONGENITAL GENITAL MALFORMATION [None]
  - CONGENITAL NOSE MALFORMATION [None]
  - CYANOSIS NEONATAL [None]
  - DRUG EXPOSURE DURING PREGNANCY [None]
  - FACIAL DYSMORPHISM [None]
  - HYPOTONIA NEONATAL [None]
  - LOW SET EARS [None]
  - MALAISE [None]
  - MIOSIS [None]
  - NEONATAL DISORDER [None]
  - OESOPHAGITIS [None]
  - PUPILS UNEQUAL [None]
  - RETROGNATHIA [None]
  - SKULL MALFORMATION [None]
  - VISION ABNORMAL NEONATAL [None]
